FAERS Safety Report 5045610-6 (Version None)
Quarter: 2006Q3

REPORT INFORMATION
  Report Type: 
  Country: None (occurrence: None)
  Receive Date: 20060707
  Receipt Date: 20060628
  Transmission Date: 20061208
  Serious: Yes (Hospitalization)
  Sender: FDA-Public Use
  Company Number: JP-ROCHE-453545

PATIENT
  Age: 62 Year
  Sex: Male

DRUGS (4)
  1. PANALDINE [Suspect]
     Indication: THROMBOSIS PROPHYLAXIS
     Dosage: ADDITIONAL INDICATION: STENT PLACEMENT, ACUTE MYOCARDIAL INFARCTION
     Route: 048
     Dates: start: 20060513, end: 20060609
  2. ASPIRIN [Concomitant]
     Route: 048
  3. GASTER [Concomitant]
     Route: 048
  4. LASIX [Concomitant]
     Route: 048

REACTIONS (2)
  - GRANULOCYTOPENIA [None]
  - LIVER DISORDER [None]
